FAERS Safety Report 14404081 (Version 1)
Quarter: 2018Q1

REPORT INFORMATION
  Report Type: Spontaneous
  Country: ZA (occurrence: ZA)
  Receive Date: 20180117
  Receipt Date: 20180117
  Transmission Date: 20180509
  Serious: Yes (Death)
  Sender: FDA-Public Use
  Company Number: ZA-MYLANLABS-2018M1004730

PATIENT
  Age: 69 Year
  Sex: Male

DRUGS (3)
  1. BETACOR /00008501/ [Suspect]
     Active Substance: BETAMETHASONE
     Indication: HYPERTENSION
     Dosage: UNK
     Route: 048
     Dates: end: 20171222
  2. MIZART [Suspect]
     Active Substance: TELMISARTAN
     Indication: HYPERTENSION
     Dosage: UNK
     Route: 048
     Dates: end: 20171222
  3. RIDAQ [Suspect]
     Active Substance: HYDROCHLOROTHIAZIDE
     Indication: POLYURIA
     Dosage: UNK
     Route: 048
     Dates: end: 20171222

REACTIONS (1)
  - Renal failure [Fatal]
